FAERS Safety Report 25856365 (Version 1)
Quarter: 2025Q3

REPORT INFORMATION
  Report Type: Spontaneous
  Country: JP (occurrence: JP)
  Receive Date: 20250928
  Receipt Date: 20250928
  Transmission Date: 20251020
  Serious: No
  Sender: MERCK SHARP & DOHME LLC
  Company Number: JP-009507513-2333792

PATIENT
  Age: 76 Year
  Sex: Male

DRUGS (4)
  1. MOLNUPIRAVIR [Suspect]
     Active Substance: MOLNUPIRAVIR
     Indication: COVID-19
  2. nirmatrelvir/ritonavir (NMV/r) [Concomitant]
     Indication: COVID-19
  3. RTX, Rituximab [Concomitant]
     Indication: Granulomatosis with polyangiitis
  4. remdesivir (RDV) [Concomitant]
     Indication: COVID-19

REACTIONS (2)
  - Product use in unapproved indication [Unknown]
  - No adverse event [Unknown]
